FAERS Safety Report 7834076-6 (Version None)
Quarter: 2011Q4

REPORT INFORMATION
  Report Type: 
  Country: None (occurrence: None)
  Receive Date: 20111024
  Receipt Date: 20111024
  Transmission Date: 20120403
  Serious: Yes (Other)
  Sender: FDA-Public Use
  Company Number: None

PATIENT
  Age: 2 Year
  Sex: Female
  Weight: 12.246 kg

DRUGS (1)
  1. SINGULAIR [Suspect]
     Indication: ASTHMA
     Dosage: 4MG ORAL GRANULES 1 PACKET
     Route: 048
     Dates: start: 20111013, end: 20111017

REACTIONS (10)
  - ABDOMINAL PAIN UPPER [None]
  - AGGRESSION [None]
  - INTENTIONAL SELF-INJURY [None]
  - INCREASED APPETITE [None]
  - AGITATION [None]
  - TRICHOTILLOMANIA [None]
  - SLEEP DISORDER [None]
  - BRUXISM [None]
  - CONFUSIONAL STATE [None]
  - SLEEP TERROR [None]
